FAERS Safety Report 9174067 (Version 1)
Quarter: 2013Q1

REPORT INFORMATION
  Report Type: Spontaneous
  Country: US (occurrence: None)
  Receive Date: 20130313
  Receipt Date: 20130313
  Transmission Date: 20140127
  Serious: Yes (Other)
  Sender: FDA-Public Use
  Company Number: DEP_00876_2013

PATIENT
  Age: 73 Year
  Sex: Female

DRUGS (4)
  1. GABAPENTIN [Suspect]
     Dosage: (DF)
  2. BROMOCRIPTINE [Concomitant]
  3. LISINOPRIL [Concomitant]
  4. THYROXIN [Concomitant]

REACTIONS (5)
  - Formication [None]
  - Rash pruritic [None]
  - Excoriation [None]
  - Generalised erythema [None]
  - Somatic delusion [None]
